FAERS Safety Report 5770487-0 (Version None)
Quarter: 2008Q2

REPORT INFORMATION
  Report Type: 
  Country: None (occurrence: None)
  Receive Date: 20080613
  Receipt Date: 20080505
  Transmission Date: 20081010
  Serious: No
  Sender: FDA-Public Use
  Company Number: US-ABBOTT-08P-163-0450414-00

PATIENT
  Sex: Female
  Weight: 61.29 kg

DRUGS (9)
  1. HUMIRA [Suspect]
     Indication: PSORIASIS
     Route: 058
     Dates: start: 20080401, end: 20080422
  2. CORTISONE [Suspect]
     Indication: ARTHRALGIA
     Route: 050
     Dates: start: 20080506, end: 20080506
  3. METOCLOPRAMIDE [Concomitant]
     Indication: HIATUS HERNIA
     Route: 048
  4. PANTOPRAZOLE [Concomitant]
     Indication: HIATUS HERNIA
     Route: 048
  5. METOPROLOL SUCCINATE [Concomitant]
     Indication: HYPERTENSION
     Route: 048
  6. PRAVASTATIN SODIUM [Concomitant]
     Indication: BLOOD CHOLESTEROL INCREASED
     Route: 048
  7. FOLIC ACID [Concomitant]
     Indication: PROPHYLAXIS
     Route: 048
  8. ALENDRONATE SODIUM [Concomitant]
     Indication: OSTEOPOROSIS
     Route: 048
  9. VITAMINS [Concomitant]
     Indication: DRUG USE FOR UNKNOWN INDICATION
     Route: 048

REACTIONS (1)
  - ERYTHEMA [None]
